FAERS Safety Report 24175753 (Version 4)
Quarter: 2024Q4

REPORT INFORMATION
  Report Type: Report from Study
  Country: CO (occurrence: CO)
  Receive Date: 20240805
  Receipt Date: 20241218
  Transmission Date: 20250115
  Serious: No
  Sender: JOHNSON AND JOHNSON
  Company Number: CO-JNJFOC-20240761593

PATIENT
  Age: 53 Year
  Sex: Female
  Weight: 83 kg

DRUGS (1)
  1. SIMPONI [Suspect]
     Active Substance: GOLIMUMAB
     Indication: Rheumatoid arthritis
     Dosage: STRENGTH: 50.00 MG / 0.50 ML
     Route: 058
     Dates: start: 20201106

REACTIONS (6)
  - Influenza [Not Recovered/Not Resolved]
  - Device issue [Unknown]
  - Incorrect route of product administration [Unknown]
  - Discomfort [Unknown]
  - Grip strength decreased [Not Recovered/Not Resolved]
  - Device issue [Unknown]

NARRATIVE: CASE EVENT DATE: 20240720
